FAERS Safety Report 4493110-4 (Version None)
Quarter: 2004Q4

REPORT INFORMATION
  Report Type: 
  Country: None (occurrence: None)
  Receive Date: 20041104
  Receipt Date: 20041028
  Transmission Date: 20050328
  Serious: Yes (Other)
  Sender: FDA-Public Use
  Company Number: GB-GLAXOSMITHKLINE-B0349668A

PATIENT
  Age: 59 Year
  Sex: Female
  Weight: 14 kg

DRUGS (5)
  1. SERETIDE [Suspect]
     Indication: ASTHMA
     Dosage: 250MCG PER DAY
     Route: 055
     Dates: start: 20040907, end: 20040921
  2. BECLOMETHASONE DIPROPIONATE [Concomitant]
     Indication: ASTHMA
     Dosage: 500MG PER DAY
     Route: 055
     Dates: start: 20030101, end: 20040907
  3. RAMIPRIL [Concomitant]
     Indication: HYPERTENSION
     Dosage: 5MG PER DAY
     Route: 048
  4. CO-AMILOFRUSE [Concomitant]
     Indication: HYPERTENSION
     Route: 048
  5. INDOMETHACIN [Concomitant]
     Indication: ARTHRITIS
     Dosage: 25MG PER DAY
     Route: 048
     Dates: start: 20040606

REACTIONS (3)
  - CONDITION AGGRAVATED [None]
  - OEDEMA MOUTH [None]
  - WHEEZING [None]
